FAERS Safety Report 22380795 (Version 1)
Quarter: 2023Q2

REPORT INFORMATION
  Report Type: Report from Study
  Country: EG (occurrence: EG)
  Receive Date: 20230530
  Receipt Date: 20230530
  Transmission Date: 20230722
  Serious: Yes (Other)
  Sender: FDA-Public Use
  Company Number: EG-002147023-NVSC2023EG120451

PATIENT
  Age: 35 Year
  Sex: Female

DRUGS (8)
  1. AIMOVIG [Suspect]
     Active Substance: ERENUMAB-AOOE
     Indication: Migraine
     Dosage: 70 MG, QMO (FOR 10 MONTHS)
     Route: 058
     Dates: start: 20210115, end: 20220907
  2. AIMOVIG [Suspect]
     Active Substance: ERENUMAB-AOOE
     Dosage: 70 MG (ONE PEN EVERY 40 DAYS)
     Route: 058
  3. AIMOVIG [Suspect]
     Active Substance: ERENUMAB-AOOE
     Dosage: 70 MG (ONE PEN EVERY 2 MONTHS FOR 3 MONTHS)
     Route: 058
     Dates: end: 20220907
  4. MIGROSTOP [Concomitant]
     Indication: Migraine
     Dosage: UNK, FOUR YEARS AGO
     Route: 048
  5. AMIGRAWEST [Concomitant]
     Indication: Migraine
     Dosage: UNK, FOUR YEARS AGO
     Route: 048
  6. DIMRA [Concomitant]
     Indication: Muscle relaxant therapy
     Dosage: UNK, ONE YEAR AND HALF AGO
     Route: 048
  7. DANTRELAX [Concomitant]
     Indication: Muscle relaxant therapy
     Dosage: UNK, ONE YEAR AND HALF AGO
     Route: 048
  8. Solpadeine [Concomitant]
     Indication: Product used for unknown indication
     Dosage: UNK
     Route: 065

REACTIONS (10)
  - Vitamin D deficiency [Not Recovered/Not Resolved]
  - Stress [Recovering/Resolving]
  - Depression [Recovering/Resolving]
  - COVID-19 [Recovered/Resolved]
  - Fatigue [Recovered/Resolved]
  - Asthenia [Recovered/Resolved]
  - Immune system disorder [Recovered/Resolved]
  - Migraine [Recovered/Resolved]
  - Migraine [Recovered/Resolved]
  - Nasopharyngitis [Recovered/Resolved]

NARRATIVE: CASE EVENT DATE: 20210115
